FAERS Safety Report 8113522-7 (Version None)
Quarter: 2012Q1

REPORT INFORMATION
  Report Type: 
  Country: None (occurrence: None)
  Receive Date: 20120203
  Receipt Date: 20120126
  Transmission Date: 20120608
  Serious: Yes (Other)
  Sender: FDA-Public Use
  Company Number: US-ELI_LILLY_AND_COMPANY-US201102004388

PATIENT
  Sex: Female
  Weight: 90.249 kg

DRUGS (4)
  1. LANTUS [Concomitant]
     Indication: DIABETES MELLITUS
  2. HUMALOG [Suspect]
     Indication: DIABETES MELLITUS
     Dosage: UNK, AS NEEDED
     Route: 065
  3. HUMALOG [Suspect]
     Dosage: UNK, AS NEEDED
     Route: 065
  4. HUMALOG [Suspect]
     Dosage: UNK, UNKNOWN
     Route: 065
     Dates: start: 19960101

REACTIONS (4)
  - DEPRESSED LEVEL OF CONSCIOUSNESS [None]
  - DIABETES MELLITUS INADEQUATE CONTROL [None]
  - ASTHENIA [None]
  - HYPOGLYCAEMIA [None]
